FAERS Safety Report 22374112 (Version 1)
Quarter: 2023Q2

REPORT INFORMATION
  Report Type: Spontaneous
  Country: GB (occurrence: GB)
  Receive Date: 20230526
  Receipt Date: 20230526
  Transmission Date: 20230722
  Serious: Yes (Other)
  Sender: FDA-Public Use
  Company Number: GB-JNJFOC-20230551672

PATIENT
  Age: 74 Year
  Sex: Male

DRUGS (1)
  1. DARZALEX [Suspect]
     Active Substance: DARATUMUMAB
     Indication: Plasma cell myeloma
     Route: 065
     Dates: end: 202204

REACTIONS (3)
  - Neuropathy peripheral [Recovering/Resolving]
  - Hormone level abnormal [Recovering/Resolving]
  - Poor quality sleep [Recovering/Resolving]
